FAERS Safety Report 25606650 (Version 1)
Quarter: 2025Q3

REPORT INFORMATION
  Report Type: Spontaneous
  Country: US (occurrence: US)
  Receive Date: 20250725
  Receipt Date: 20250725
  Transmission Date: 20251021
  Serious: Yes (Other)
  Sender: AMGEN
  Company Number: US-AMGEN-USASP2025142015

PATIENT
  Age: 38 Year
  Sex: Female

DRUGS (6)
  1. PREDNISONE [Suspect]
     Active Substance: PREDNISONE
     Indication: Sinusitis
     Route: 065
  2. PREDNISONE [Suspect]
     Active Substance: PREDNISONE
     Indication: Influenza
  3. LEVOFLOXACIN [Concomitant]
     Active Substance: LEVOFLOXACIN
     Indication: Sinusitis
  4. LEVOFLOXACIN [Concomitant]
     Active Substance: LEVOFLOXACIN
     Indication: Influenza
  5. XOFLUZA [Concomitant]
     Active Substance: BALOXAVIR MARBOXIL
     Indication: Sinusitis
  6. XOFLUZA [Concomitant]
     Active Substance: BALOXAVIR MARBOXIL
     Indication: Influenza

REACTIONS (2)
  - Haemophagocytic lymphohistiocytosis [Unknown]
  - Off label use [Unknown]
